FAERS Safety Report 7895364-0 (Version None)
Quarter: 2011Q4

REPORT INFORMATION
  Report Type: 
  Country: None (occurrence: None)
  Receive Date: 20111106
  Receipt Date: 20110825
  Transmission Date: 20120403
  Serious: No
  Sender: FDA-Public Use
  Company Number: US-AMGEN-USASP2011038140

PATIENT
  Age: 31 Year
  Sex: Male

DRUGS (1)
  1. ENBREL [Suspect]
     Indication: PSORIATIC ARTHROPATHY
     Dosage: 50 MG, 2 TIMES/WK
     Dates: start: 20110501

REACTIONS (5)
  - EYE PAIN [None]
  - EYE PRURITUS [None]
  - EYE INFLAMMATION [None]
  - EYE SWELLING [None]
  - URINARY TRACT INFECTION [None]
